FAERS Safety Report 5917961-1 (Version None)
Quarter: 2008Q4

REPORT INFORMATION
  Report Type: 
  Country: None (occurrence: None)
  Receive Date: 20081014
  Receipt Date: 20081002
  Transmission Date: 20090506
  Serious: Yes (Death)
  Sender: FDA-Public Use
  Company Number: US-PFIZER INC-2008068233

PATIENT
  Sex: Male

DRUGS (2)
  1. NEURONTIN [Suspect]
  2. ZOLOFT [Suspect]

REACTIONS (1)
  - LEUKAEMIA [None]
